FAERS Safety Report 5246406-2 (Version None)
Quarter: 2007Q1

REPORT INFORMATION
  Report Type: 
  Country: None (occurrence: None)
  Receive Date: 20070226
  Receipt Date: 20070215
  Transmission Date: 20070707
  Serious: Yes (Other)
  Sender: FDA-Public Use
  Company Number: FR-JNJFOC-20070204774

PATIENT
  Sex: Female

DRUGS (1)
  1. HALDOL [Suspect]
     Indication: ANXIETY
     Route: 048

REACTIONS (2)
  - DYSKINESIA [None]
  - DYSPNOEA [None]
